FAERS Safety Report 11070450 (Version 1)
Quarter: 2015Q2

REPORT INFORMATION
  Report Type: Spontaneous
  Country: US (occurrence: US)
  Receive Date: 20150427
  Receipt Date: 20150427
  Transmission Date: 20150821
  Serious: Yes (Other)
  Sender: FDA-Public Use
  Company Number: US-GE HEALTHCARE MEDICAL DIAGNOSTICS-OSCN-PR-1504L-0093

PATIENT
  Sex: Female

DRUGS (5)
  1. GADOLINIUM (UNSPECIFIED) [Suspect]
     Active Substance: GADOLINIUM
     Route: 065
     Dates: start: 2010
  2. GADOLINIUM (UNSPECIFIED) [Suspect]
     Active Substance: GADOLINIUM
     Route: 065
     Dates: start: 2010
  3. GADOLINIUM (UNSPECIFIED) [Suspect]
     Active Substance: GADOLINIUM
     Indication: PRODUCT USED FOR UNKNOWN INDICATION
     Route: 065
  4. GADOLINIUM (UNSPECIFIED) [Suspect]
     Active Substance: GADOLINIUM
     Indication: DIAGNOSTIC PROCEDURE
     Route: 065
  5. GADOLINIUM (UNSPECIFIED) [Suspect]
     Active Substance: GADOLINIUM
     Route: 065

REACTIONS (8)
  - Condition aggravated [Unknown]
  - Dysaesthesia [Unknown]
  - Headache [Unknown]
  - Body temperature decreased [Unknown]
  - Dry eye [Unknown]
  - Vision blurred [Unknown]
  - Chest discomfort [Unknown]
  - Blood pressure fluctuation [Unknown]

NARRATIVE: CASE EVENT DATE: 2010
